FAERS Safety Report 10157885 (Version 2)
Quarter: 2014Q2

REPORT INFORMATION
  Report Type: Report from Study
  Country: US (occurrence: US)
  Receive Date: 20140507
  Receipt Date: 20140508
  Transmission Date: 20141212
  Serious: Yes (Other)
  Sender: FDA-Public Use
  Company Number: US-ABBVIE-14P-163-1231145-00

PATIENT
  Sex: Female
  Weight: 85.81 kg

DRUGS (30)
  1. HUMIRA [Suspect]
     Indication: RHEUMATOID ARTHRITIS
     Dosage: FALL 2013
     Dates: start: 2013, end: 2013
  2. HUMIRA [Suspect]
     Dates: start: 20140327
  3. ALKA-SELTZER PLUS [Suspect]
     Indication: NASOPHARYNGITIS
     Dates: start: 201301, end: 201301
  4. ASPIRIN [Concomitant]
     Indication: PROPHYLAXIS
  5. CALCIUM [Concomitant]
     Indication: MINERAL SUPPLEMENTATION
  6. VITAMIN D NOS [Concomitant]
     Indication: BONE DISORDER
  7. CARVEDILOL [Concomitant]
     Indication: HYPERTENSION
  8. CO Q 10 [Concomitant]
     Indication: SUPPLEMENTATION THERAPY
  9. DICYCLOMINE [Concomitant]
     Indication: ABDOMINAL PAIN UPPER
  10. ESTRADIOL [Concomitant]
     Indication: HORMONE REPLACEMENT THERAPY
  11. ESTRADIOL [Concomitant]
     Indication: BONE DISORDER
  12. FISH OIL [Concomitant]
     Indication: PRODUCT USED FOR UNKNOWN INDICATION
  13. FLAXSEED OIL [Concomitant]
     Indication: PRODUCT USED FOR UNKNOWN INDICATION
  14. FLUTICASONE [Concomitant]
     Indication: RHINORRHOEA
  15. FLUTICASONE [Concomitant]
     Indication: HYPERSENSITIVITY
  16. LISINOPRIL [Concomitant]
     Indication: HYPERTENSION
  17. LORATIDINE [Concomitant]
     Indication: HYPERSENSITIVITY
  18. MAGNESIUM [Concomitant]
     Indication: PRODUCT USED FOR UNKNOWN INDICATION
  19. MOBIC [Concomitant]
     Indication: RHEUMATOID ARTHRITIS
  20. MULTIVITAMIN WITH MINERALS [Concomitant]
     Indication: PRODUCT USED FOR UNKNOWN INDICATION
  21. OMEPRAZOLE [Concomitant]
     Indication: GASTROOESOPHAGEAL REFLUX DISEASE
  22. MELATONIN [Concomitant]
     Indication: GASTROOESOPHAGEAL REFLUX DISEASE
  23. PERCOCET [Concomitant]
     Indication: PAIN
  24. STOOL SOFTENER [Concomitant]
     Indication: CONSTIPATION
  25. STOOL SOFTENER [Concomitant]
     Indication: PROPHYLAXIS
  26. PROVENTIL [Concomitant]
     Indication: DYSPNOEA EXERTIONAL
  27. SIMVASTATIN [Concomitant]
     Indication: BLOOD CHOLESTEROL INCREASED
  28. TRAMADOL [Concomitant]
     Indication: PAIN
  29. TURMERIC [Concomitant]
     Indication: PRODUCT USED FOR UNKNOWN INDICATION
  30. VITAMIN C [Concomitant]
     Indication: PRODUCT USED FOR UNKNOWN INDICATION

REACTIONS (5)
  - Osteoarthritis [Recovered/Resolved]
  - Pain in extremity [Recovered/Resolved]
  - Nasopharyngitis [Recovered/Resolved]
  - Diarrhoea [Recovered/Resolved]
  - Haemorrhoids [Recovered/Resolved]
